FAERS Safety Report 18264931 (Version 1)
Quarter: 2020Q3

REPORT INFORMATION
  Report Type: Spontaneous
  Country: US (occurrence: US)
  Receive Date: 20200914
  Receipt Date: 20200914
  Transmission Date: 20201103
  Serious: Yes (Other)
  Sender: FDA-Public Use
  Company Number: US-FRESENIUS KABI-FK202009367

PATIENT

DRUGS (1)
  1. DILAUDID [Suspect]
     Active Substance: HYDROMORPHONE HYDROCHLORIDE
     Indication: PRODUCT USED FOR UNKNOWN INDICATION
     Dosage: UNKNOWN; RECEIVED THE DRUG ON SEVERAL OCCASIONS
     Route: 065

REACTIONS (15)
  - Dehydration [Unknown]
  - Metabolic acidosis [Unknown]
  - Seizure [Unknown]
  - Pelvic inflammatory disease [Unknown]
  - Hyperglycaemia [Unknown]
  - Systemic inflammatory response syndrome [Unknown]
  - Electrolyte imbalance [Unknown]
  - Nausea [Unknown]
  - Impaired gastric emptying [Unknown]
  - Feeding intolerance [Unknown]
  - Constipation [Unknown]
  - Haematemesis [Unknown]
  - Loss of consciousness [Unknown]
  - Feeding tube user [Unknown]
  - Vomiting [Unknown]
